FAERS Safety Report 4440102-7 (Version None)
Quarter: 2004Q3

REPORT INFORMATION
  Report Type: 
  Country: None (occurrence: None)
  Receive Date: 20040902
  Receipt Date: 20040825
  Transmission Date: 20050211
  Serious: Yes (Hospitalization)
  Sender: FDA-Public Use
  Company Number: PL-MERCK-0408POL00009

PATIENT
  Age: 60 Year

DRUGS (1)
  1. TRUSOPT [Suspect]
     Indication: GLAUCOMA
     Route: 047

REACTIONS (4)
  - CILIARY BODY DISORDER [None]
  - CONJUNCTIVITIS INFECTIVE [None]
  - CORNEAL LESION [None]
  - KERATOCONJUNCTIVITIS SICCA [None]
